FAERS Safety Report 9858117 (Version 1)
Quarter: 2014Q1

REPORT INFORMATION
  Report Type: Spontaneous
  Country: US (occurrence: None)
  Receive Date: 20140129
  Receipt Date: 20140129
  Transmission Date: 20141002
  Serious: Yes (Other)
  Sender: FDA-Public Use
  Company Number: None

PATIENT
  Age: 68 Year
  Sex: 0

DRUGS (1)
  1. DULOXETINE DELAYED-RELEASE [Suspect]
     Indication: DEPRESSION
     Route: 048
     Dates: start: 20140103, end: 20140113

REACTIONS (2)
  - Hypertension [None]
  - Product substitution issue [None]
